FAERS Safety Report 17457298 (Version 1)
Quarter: 2020Q1

REPORT INFORMATION
  Report Type: Spontaneous
  Country: LT (occurrence: LT)
  Receive Date: 20200225
  Receipt Date: 20200225
  Transmission Date: 20200409
  Serious: Yes (Hospitalization)
  Sender: FDA-Public Use
  Company Number: LT-JNJFOC-20200233027

PATIENT
  Age: 73 Year
  Sex: Male

DRUGS (1)
  1. RIVAROXABAN [Suspect]
     Active Substance: RIVAROXABAN
     Indication: ATRIAL FIBRILLATION
     Dosage: 20 MG, QD
     Route: 048
     Dates: start: 201910

REACTIONS (6)
  - Adenocarcinoma of colon [Unknown]
  - Weight decreased [Unknown]
  - Muscular weakness [Unknown]
  - Intestinal haemorrhage [Unknown]
  - Cerebral infarction [Unknown]
  - Haematochezia [Unknown]

NARRATIVE: CASE EVENT DATE: 201910
